FAERS Safety Report 4686597-5 (Version None)
Quarter: 2005Q2

REPORT INFORMATION
  Report Type: 
  Country: None (occurrence: None)
  Receive Date: 20050609
  Receipt Date: 20050531
  Transmission Date: 20051028
  Serious: Yes (Hospitalization)
  Sender: FDA-Public Use
  Company Number: SE-BRISTOL-MYERS SQUIBB COMPANY-12986485

PATIENT
  Age: 41 Year
  Sex: Male

DRUGS (6)
  1. ABILIFY [Suspect]
     Dates: start: 20041001, end: 20041012
  2. ZYPREXA [Concomitant]
     Dosage: DOSE DECREASED TO 10 MG DAILY ON 09-OCT-2004/DISCONTINUED ON 12-OCT-2004.
     Dates: end: 20041012
  3. ABSENOR [Concomitant]
     Dosage: INITIATED ON AN UNKNOWN DATE AT 1.5 GRAMS TWICE DAILY/DECREASED TO 1.5 GRAMS DAILY ON 19-SEP-2004.
  4. KEPPRA [Concomitant]
  5. STESOLID [Concomitant]
  6. IMOVANE [Concomitant]

REACTIONS (3)
  - ABNORMAL BEHAVIOUR [None]
  - DRUG INTERACTION [None]
  - PHYSICAL ASSAULT [None]
